FAERS Safety Report 6504610-7 (Version None)
Quarter: 2009Q4

REPORT INFORMATION
  Report Type: 
  Country: None (occurrence: None)
  Receive Date: 20091215
  Receipt Date: 20091207
  Transmission Date: 20100525
  Serious: Yes (Death, Other)
  Sender: FDA-Public Use
  Company Number: 2009US004347

PATIENT
  Age: 28 Year
  Sex: Female

DRUGS (3)
  1. PROGRAF [Suspect]
     Indication: ORGAN TRANSPLANT
  2. SIROLIMUS [Suspect]
     Indication: ORGAN TRANSPLANT
  3. METHYLPREDNISOLONE [Suspect]
     Indication: ORGAN TRANSPLANT

REACTIONS (13)
  - ARTHRITIS [None]
  - ARTHRITIS BACTERIAL [None]
  - BREAST ABSCESS [None]
  - BREAST MASS [None]
  - CREATININE RENAL CLEARANCE DECREASED [None]
  - EPSTEIN-BARR VIRUS ASSOCIATED LYMPHOPROLIFERATIVE DISORDER [None]
  - HERPES ZOSTER [None]
  - INTESTINE TRANSPLANT REJECTION [None]
  - MULTI-ORGAN FAILURE [None]
  - MYCOBACTERIUM ABSCESSUS INFECTION [None]
  - NODULE ON EXTREMITY [None]
  - OFF LABEL USE [None]
  - PURULENCE [None]
